FAERS Safety Report 8194137-1 (Version None)
Quarter: 2012Q1

REPORT INFORMATION
  Report Type: 
  Country: None (occurrence: None)
  Receive Date: 20120308
  Receipt Date: 20120302
  Transmission Date: 20120608
  Serious: Yes (Hospitalization, Other)
  Sender: FDA-Public Use
  Company Number: US-ABBOTT-12P-163-0911008-00

PATIENT
  Age: 68 Year
  Sex: Male

DRUGS (13)
  1. HUMIRA [Suspect]
     Indication: PSORIATIC ARTHROPATHY
     Dates: start: 20090101, end: 20100912
  2. CALCIUM + VITAMIN D [Concomitant]
     Indication: SUPPLEMENTATION THERAPY
  3. OMEPRAZOLE [Concomitant]
     Indication: ULCER
  4. SIMVASTATIN [Concomitant]
     Indication: BLOOD TRIGLYCERIDES INCREASED
  5. WARFARIN SODIUM [Concomitant]
     Indication: PRODUCT USED FOR UNKNOWN INDICATION
  6. ALLOPURINOL [Concomitant]
     Indication: PRODUCT USED FOR UNKNOWN INDICATION
  7. FOLIC ACID [Concomitant]
     Indication: SUPPLEMENTATION THERAPY
  8. POTASSIUM CHLORIDE [Concomitant]
     Indication: PRODUCT USED FOR UNKNOWN INDICATION
  9. HUMIRA [Suspect]
     Dates: start: 20120201
  10. METHOTREXATE [Concomitant]
     Indication: PSORIASIS
  11. METOPROLOL TARTRATE [Concomitant]
     Indication: HEART RATE IRREGULAR
  12. AMLODIPINE [Concomitant]
     Indication: HYPERTENSION
  13. MAGNESIUM OXIDE [Concomitant]
     Indication: ATRIAL FIBRILLATION

REACTIONS (24)
  - GALLBLADDER DISORDER [None]
  - PSORIASIS [None]
  - COLOSTOMY [None]
  - INTERVERTEBRAL DISC DISORDER [None]
  - LARGE INTESTINE PERFORATION [None]
  - APNOEA [None]
  - ABDOMINAL PAIN [None]
  - BODY FAT DISORDER [None]
  - ABDOMINAL DISTENSION [None]
  - BODY HEIGHT DECREASED [None]
  - PULSE ABNORMAL [None]
  - ESCHERICHIA INFECTION [None]
  - HEPARIN-INDUCED THROMBOCYTOPENIA [None]
  - SEPSIS [None]
  - MUSCLE ATROPHY [None]
  - GASTROINTESTINAL STOMA COMPLICATION [None]
  - ABDOMINAL ABSCESS [None]
  - COMA [None]
  - ARTHRALGIA [None]
  - SKIN INFECTION [None]
  - ATRIAL FIBRILLATION [None]
  - DRUG HYPERSENSITIVITY [None]
  - SCIATICA [None]
  - ERYTHEMA [None]
